FAERS Safety Report 25958305 (Version 1)
Quarter: 2025Q4

REPORT INFORMATION
  Report Type: Spontaneous
  Country: US (occurrence: US)
  Receive Date: 20251024
  Receipt Date: 20251024
  Transmission Date: 20260118
  Serious: Yes (Hospitalization, Disabling, Other)
  Sender: NOVO NORDISK
  Company Number: US-NOVOPROD-1534779

PATIENT
  Age: 69 Year
  Sex: Female

DRUGS (2)
  1. TRESIBA [Suspect]
     Active Substance: INSULIN DEGLUDEC
     Indication: Type 2 diabetes mellitus
     Dosage: 8 IU, QD
     Dates: start: 201707
  2. NOVOLOG [Suspect]
     Active Substance: INSULIN ASPART
     Indication: Type 2 diabetes mellitus
     Dosage: UNK

REACTIONS (6)
  - Herpes zoster [Recovering/Resolving]
  - Transient ischaemic attack [Unknown]
  - Hypotension [Unknown]
  - Craniocerebral injury [Unknown]
  - Cerebrovascular accident [Unknown]
  - Weight decreased [Recovered/Resolved]

NARRATIVE: CASE EVENT DATE: 20180101
